FAERS Safety Report 9084414 (Version 1)
Quarter: 2013Q1

REPORT INFORMATION
  Report Type: Report from Study
  Country: US (occurrence: US)
  Receive Date: 20130131
  Receipt Date: 20130131
  Transmission Date: 20140127
  Serious: No
  Sender: FDA-Public Use
  Company Number: US-ABBOTT-12P-163-1001147-00

PATIENT
  Age: 31 Year
  Sex: Female

DRUGS (4)
  1. HUMIRA [Suspect]
     Indication: CROHN^S DISEASE
     Route: 058
  2. FLUOCINOLONE [Concomitant]
     Indication: PSORIASIS
     Dosage: SCALP OIL
  3. TRIAMCINOLONE [Concomitant]
     Indication: PSORIASIS
  4. OXYCODONE [Concomitant]
     Indication: SCOLIOSIS

REACTIONS (1)
  - Neck mass [Unknown]
